FAERS Safety Report 25025480 (Version 1)
Quarter: 2025Q1

REPORT INFORMATION
  Report Type: Spontaneous
  Country: IT (occurrence: IT)
  Receive Date: 20250228
  Receipt Date: 20250228
  Transmission Date: 20250408
  Serious: Yes (Death, Hospitalization, Other)
  Sender: IPSEN BIOPHARMACEUTICALS, INC.
  Company Number: IT-IPSEN Group, Research and Development-2025-04568

PATIENT
  Sex: Female

DRUGS (1)
  1. BYLVAY [Suspect]
     Active Substance: ODEVIXIBAT
     Indication: Product used for unknown indication
     Route: 065
     Dates: start: 20250116, end: 20250127

REACTIONS (2)
  - Death [Fatal]
  - Hospitalisation [Unknown]
